FAERS Safety Report 7374487-9 (Version None)
Quarter: 2011Q1

REPORT INFORMATION
  Report Type: 
  Country: None (occurrence: None)
  Receive Date: 20110325
  Receipt Date: 20110128
  Transmission Date: 20110831
  Serious: No
  Sender: FDA-Public Use
  Company Number: US-MYLANLABS-2011S1000961

PATIENT
  Age: 42 Year
  Sex: Male

DRUGS (10)
  1. BENAZEPRIL HYDROCHLORIDE [Concomitant]
     Indication: BLOOD PRESSURE
     Dosage: 10MG/20MG
  2. LORAZEPAM [Concomitant]
     Indication: ANXIETY
  3. VITAMIN TAB [Concomitant]
  4. LORCET-HD [Concomitant]
     Indication: BREAKTHROUGH PAIN
     Dates: start: 20101201
  5. COCONUT OIL [Concomitant]
  6. MILK THISTLE [Concomitant]
  7. MULTIPLE VITAMINS [Concomitant]
  8. ZOLOFT [Concomitant]
     Indication: DEPRESSION
  9. FISH OIL [Concomitant]
  10. FENTANYL-100 [Suspect]
     Indication: BACK PAIN
     Dosage: CHANGED Q72H.
     Route: 062
     Dates: start: 20010101

REACTIONS (5)
  - HOT FLUSH [None]
  - INSOMNIA [None]
  - DRUG EFFECT DECREASED [None]
  - CHILLS [None]
  - PAIN [None]
